FAERS Safety Report 18594834 (Version 1)
Quarter: 2020Q4

REPORT INFORMATION
  Report Type: Spontaneous
  Country: US (occurrence: US)
  Receive Date: 20201209
  Receipt Date: 20201209
  Transmission Date: 20210114
  Serious: No
  Sender: FDA-Public Use
  Company Number: US-MYLANLABS-2020M1097937

PATIENT
  Sex: Female

DRUGS (3)
  1. MIRENA [Concomitant]
     Active Substance: LEVONORGESTREL
     Dosage: UNK
  2. ESTRADIOL TRANSDERMAL SYSTEM [Suspect]
     Active Substance: ESTRADIOL
     Indication: MENOPAUSE
     Dosage: 0.0375 MG, QD (ONCE/ WEEK)
     Route: 062
  3. TESTOSTERONE. [Concomitant]
     Active Substance: TESTOSTERONE
     Dosage: 0.1 MILLIGRAM, QW

REACTIONS (5)
  - Affect lability [Recovering/Resolving]
  - Therapeutic product effect decreased [Recovering/Resolving]
  - Menstrual disorder [Recovering/Resolving]
  - Product adhesion issue [Recovering/Resolving]
  - Device delivery system issue [Recovering/Resolving]
